FAERS Safety Report 20425109 (Version 1)
Quarter: 2022Q1

REPORT INFORMATION
  Report Type: Spontaneous
  Country: PL (occurrence: PL)
  Receive Date: 20220204
  Receipt Date: 20220204
  Transmission Date: 20220423
  Serious: No
  Sender: FDA-Public Use
  Company Number: None

PATIENT
  Age: 46 Year
  Sex: Female
  Weight: 69.5 kg

DRUGS (2)
  1. CABOMETYX [Suspect]
     Active Substance: CABOZANTINIB S-MALATE
     Indication: Renal cancer
     Dosage: 60 MG (INITIAL DOSE, FIRST CYCLE)
     Route: 048
     Dates: start: 20190906
  2. CABOMETYX [Suspect]
     Active Substance: CABOZANTINIB S-MALATE
     Dosage: 40 MG (REDUCED DOSE)
     Route: 048
     Dates: start: 201910

REACTIONS (6)
  - Peripheral swelling [Unknown]
  - Skin fragility [Unknown]
  - Tongue erythema [Unknown]
  - Oral discomfort [Unknown]
  - Glossodynia [Unknown]
  - Oral pain [Unknown]
